FAERS Safety Report 11823634 (Version 1)
Quarter: 2015Q4

REPORT INFORMATION
  Report Type: Report from Study
  Country: AR (occurrence: AR)
  Receive Date: 20151210
  Receipt Date: 20151210
  Transmission Date: 20160305
  Serious: Yes (Death, Other)
  Sender: FDA-Public Use
  Company Number: AR-BAYER-2015-479351

PATIENT
  Sex: Male

DRUGS (1)
  1. NEXAVAR [Suspect]
     Active Substance: SORAFENIB
     Indication: HEPATOCELLULAR CARCINOMA
     Dosage: 800 MG, QD
     Route: 048
     Dates: start: 20140624, end: 20151107

REACTIONS (3)
  - Hypophagia [Not Recovered/Not Resolved]
  - Cardiac arrest [Fatal]
  - Hepatocellular carcinoma [Not Recovered/Not Resolved]

NARRATIVE: CASE EVENT DATE: 20151107
